FAERS Safety Report 4431838-2 (Version None)
Quarter: 2004Q3

REPORT INFORMATION
  Report Type: 
  Country: None (occurrence: None)
  Receive Date: 20040818
  Receipt Date: 20040730
  Transmission Date: 20050211
  Serious: Yes (Hospitalization, Other)
  Sender: FDA-Public Use
  Company Number: US_0408104540

PATIENT
  Age: 39 Year
  Sex: Female

DRUGS (7)
  1. ZYPREXA [Suspect]
     Indication: BIPOLAR DISORDER
     Dosage: 15 MG/1 AT BEDTIME
  2. LITHIUM [Concomitant]
  3. PRILOSEC [Concomitant]
  4. LEVOTHROID [Concomitant]
  5. AVAPRO [Concomitant]
  6. IRON SUPPLEMENT [Concomitant]
  7. PAXIL [Concomitant]

REACTIONS (39)
  - ANION GAP DECREASED [None]
  - ANOXIC ENCEPHALOPATHY [None]
  - ASPIRATION [None]
  - ASTHENIA [None]
  - BLOOD CREATINE PHOSPHOKINASE INCREASED [None]
  - BLOOD CREATININE INCREASED [None]
  - BLOOD GLUCOSE INCREASED [None]
  - BLOOD SODIUM INCREASED [None]
  - BLOOD UREA INCREASED [None]
  - BOWEL SOUNDS ABNORMAL [None]
  - COMA [None]
  - DEHYDRATION [None]
  - DEPRESSED LEVEL OF CONSCIOUSNESS [None]
  - DIABETES MELLITUS NON-INSULIN-DEPENDENT [None]
  - DIABETIC KETOACIDOSIS [None]
  - DIFFICULT TO WEAN FROM VENTILATOR [None]
  - DISSEMINATED INTRAVASCULAR COAGULATION [None]
  - DRY MOUTH [None]
  - ELECTROENCEPHALOGRAM ABNORMAL [None]
  - HYPOTENSION [None]
  - HYPOTHYROIDISM [None]
  - HYPOVOLAEMIA [None]
  - LACTIC ACIDOSIS [None]
  - LETHARGY [None]
  - MALAISE [None]
  - METABOLIC ACIDOSIS [None]
  - MUSCLE ENZYME INCREASED [None]
  - MUSCLE INJURY [None]
  - OEDEMA [None]
  - OVERDOSE [None]
  - PCO2 DECREASED [None]
  - PLATELET COUNT DECREASED [None]
  - PYREXIA [None]
  - SEPSIS [None]
  - SHOCK [None]
  - SINUS TACHYCARDIA [None]
  - SINUSITIS [None]
  - THERAPEUTIC AGENT TOXICITY [None]
  - THIRST [None]
